FAERS Safety Report 8917698 (Version 2)
Quarter: 2012Q4

REPORT INFORMATION
  Report Type: 
  Country: US (occurrence: US)
  Receive Date: 20121119
  Receipt Date: 20121204
  Transmission Date: 20130627
  Serious: No
  Sender: FDA-Public Use
  Company Number: US-009507513-1211USA005881

PATIENT
  Sex: Female
  Weight: 58.96 kg

DRUGS (5)
  1. CLARITIN ORAL SOLUTION [Suspect]
     Indication: EYE PRURITUS
     Dosage: 10 mg, qd
     Route: 048
  2. CLARITIN ORAL SOLUTION [Suspect]
     Indication: LACRIMATION INCREASED
  3. CLARITIN ORAL SOLUTION [Suspect]
     Indication: MEDICAL OBSERVATION
  4. CLARITIN ORAL SOLUTION [Suspect]
     Indication: HYPERSENSITIVITY
  5. FERROUS SULFATE [Concomitant]
     Indication: ANAEMIA
     Dosage: UNK, Unknown

REACTIONS (1)
  - Drug ineffective [Unknown]
